FAERS Safety Report 6717174-X (Version None)
Quarter: 2010Q2

REPORT INFORMATION
  Report Type: 
  Country: None (occurrence: None)
  Receive Date: 20100510
  Receipt Date: 20100426
  Transmission Date: 20101027
  Serious: Yes (Other)
  Sender: FDA-Public Use
  Company Number: PHHY2010BR27337

PATIENT
  Sex: Female
  Weight: 87 kg

DRUGS (4)
  1. DIOVAN [Suspect]
     Dosage: 1 TABLET DAILY
  2. HYDROCHLOROTHIAZIDE [Concomitant]
     Indication: HYPERTENSION
     Dosage: 1 TABLET A DAY AT 10:00 HOURS
     Route: 048
  3. SIMVASTATIN [Concomitant]
     Indication: BLOOD CHOLESTEROL
     Dosage: 1 TABLET AT NIGHT
     Route: 048
  4. ATENSINA [Concomitant]
     Indication: HYPERTENSION
     Dosage: UNK
     Route: 048
     Dates: start: 20091201

REACTIONS (1)
  - BLOOD PRESSURE INCREASED [None]
